FAERS Safety Report 5472618-9 (Version None)
Quarter: 2007Q4

REPORT INFORMATION
  Report Type: 
  Country: None (occurrence: None)
  Receive Date: 20071001
  Receipt Date: 20070731
  Transmission Date: 20080405
  Serious: Yes (Death)
  Sender: FDA-Public Use
  Company Number: IN-BAXTER-2007BH006522

PATIENT
  Age: 65 Year
  Sex: Male

DRUGS (2)
  1. DIANEAL [Suspect]
     Indication: PERITONEAL DIALYSIS
     Route: 033
     Dates: start: 20030810, end: 20070706
  2. DIANEAL [Suspect]
     Route: 033
     Dates: start: 20030810, end: 20070706

REACTIONS (1)
  - CARDIO-RESPIRATORY ARREST [None]
